FAERS Safety Report 7204495-X (Version None)
Quarter: 2010Q4

REPORT INFORMATION
  Report Type: 
  Country: None (occurrence: None)
  Receive Date: 20101230
  Receipt Date: 20101223
  Transmission Date: 20110411
  Serious: Yes (Hospitalization, Disabling, Other)
  Sender: FDA-Public Use
  Company Number: US-PERRIGO-10US015856

PATIENT
  Sex: Female
  Weight: 62.585 kg

DRUGS (2)
  1. IBUPROFEN [Suspect]
     Indication: ARTHROPATHY
     Dosage: UNKNOWN
     Route: 065
  2. IBUPROFEN [Suspect]
     Indication: BACK DISORDER

REACTIONS (6)
  - COLITIS [None]
  - FAECAL VOMITING [None]
  - GASTROINTESTINAL DISORDER [None]
  - GASTROINTESTINAL HAEMORRHAGE [None]
  - GASTROINTESTINAL SURGERY [None]
  - IRRITABLE BOWEL SYNDROME [None]
